FAERS Safety Report 7327837-3 (Version None)
Quarter: 2011Q1

REPORT INFORMATION
  Report Type: 
  Country: None (occurrence: None)
  Receive Date: 20110303
  Receipt Date: 20110228
  Transmission Date: 20110831
  Serious: No
  Sender: FDA-Public Use
  Company Number: US-PFIZER INC-2011044345

PATIENT
  Sex: Female

DRUGS (2)
  1. CELEBREX [Suspect]
     Indication: JOINT INJURY
     Dosage: UNK
  2. CORTISONE [Suspect]
     Indication: JOINT INJURY
     Dosage: UNK

REACTIONS (1)
  - DRUG INEFFECTIVE [None]
